FAERS Safety Report 16104100 (Version 1)
Quarter: 2019Q1

REPORT INFORMATION
  Report Type: Report from Study
  Country: FR (occurrence: FR)
  Receive Date: 20190322
  Receipt Date: 20190322
  Transmission Date: 20190418
  Serious: Yes (Life-Threatening, Hospitalization)
  Sender: FDA-Public Use
  Company Number: FR-ACCORD-092780

PATIENT
  Age: 59 Year
  Sex: Male
  Weight: 79 kg

DRUGS (5)
  1. ADRIAMYCIN [Suspect]
     Active Substance: DOXORUBICIN HYDROCHLORIDE
     Indication: PANCREATIC NEUROENDOCRINE TUMOUR
     Dosage: 550 MG/M2, UNK
     Route: 065
     Dates: start: 20160408, end: 20170820
  2. DOXORUBICIN [Suspect]
     Active Substance: DOXORUBICIN
     Indication: PANCREATIC NEUROENDOCRINE TUMOUR
     Dosage: 550 MG/M2, UNK
     Route: 065
     Dates: start: 20160408, end: 20170820
  3. STREPTOZOCIN [Suspect]
     Active Substance: STREPTOZOCIN
     Indication: PANCREATIC NEUROENDOCRINE TUMOUR
     Dosage: DOSAGE FORM: UNKNOWN
     Route: 065
  4. ZANOSAR [Suspect]
     Active Substance: STREPTOZOCIN
     Indication: PANCREATIC NEUROENDOCRINE TUMOUR
     Dosage: DOSAGE FORM: UNKNOWN
     Route: 065
     Dates: start: 20160408, end: 20160820
  5. FLUOROURACIL. [Suspect]
     Active Substance: FLUOROURACIL
     Indication: PRODUCT USED FOR UNKNOWN INDICATION
     Dosage: 550 MG/M2, UNK
     Dates: end: 20160820

REACTIONS (3)
  - Lung disorder [Unknown]
  - Off label use [Unknown]
  - Cardiac failure [Recovered/Resolved]

NARRATIVE: CASE EVENT DATE: 20160820
